FAERS Safety Report 26100350 (Version 1)
Quarter: 2025Q4

REPORT INFORMATION
  Report Type: Spontaneous
  Country: US (occurrence: US)
  Receive Date: 20251128
  Receipt Date: 20251128
  Transmission Date: 20260119
  Serious: No
  Sender: NOVARTIS
  Company Number: US-002147023-NVSC2025US181320

PATIENT

DRUGS (1)
  1. REMIBRUTINIB [Suspect]
     Active Substance: REMIBRUTINIB
     Indication: Chronic spontaneous urticaria
     Dosage: 25 MG, BID
     Route: 048

REACTIONS (3)
  - Headache [Recovered/Resolved]
  - Diarrhoea [Unknown]
  - Petechiae [Unknown]
